FAERS Safety Report 7373272-1 (Version None)
Quarter: 2011Q1

REPORT INFORMATION
  Report Type: 
  Country: None (occurrence: None)
  Receive Date: 20110324
  Receipt Date: 20110317
  Transmission Date: 20110831
  Serious: Yes (Hospitalization, Disabling)
  Sender: FDA-Public Use
  Company Number: GB-PFIZER INC-2011059713

PATIENT
  Age: 73 Year
  Sex: Male

DRUGS (10)
  1. ALENDRONIC ACID [Concomitant]
     Indication: STEROID THERAPY
  2. SIROLIMUS [Suspect]
     Indication: ECZEMA
     Dosage: 2 MG, UNK
     Route: 048
     Dates: start: 20100301, end: 20110301
  3. SIROLIMUS [Suspect]
     Indication: DERMATITIS EXFOLIATIVE
  4. PREDNISOLONE [Concomitant]
     Indication: ECZEMA
     Dosage: 30 MG, UNK
     Route: 048
  5. PREDNISOLONE [Concomitant]
     Indication: DERMATITIS
  6. LANSOPRAZOLE [Concomitant]
     Indication: STEROID THERAPY
  7. ADCAL-D3 [Concomitant]
     Indication: STEROID THERAPY
  8. ALENDRONIC ACID [Concomitant]
     Indication: PROPHYLAXIS
     Dosage: 70 MG, UNK
     Route: 048
  9. ADCAL-D3 [Concomitant]
     Indication: PROPHYLAXIS
     Dosage: 1 DF, 2X/DAY
     Route: 048
  10. LANSOPRAZOLE [Concomitant]
     Indication: PROPHYLAXIS
     Dosage: 30 MG, UNK
     Route: 048

REACTIONS (3)
  - LEFT VENTRICULAR DYSFUNCTION [None]
  - ATRIAL FIBRILLATION [None]
  - DYSPNOEA [None]
